FAERS Safety Report 11594536 (Version 1)
Quarter: 2015Q4

REPORT INFORMATION
  Report Type: Spontaneous
  Country: HR (occurrence: HR)
  Receive Date: 20151005
  Receipt Date: 20151005
  Transmission Date: 20160304
  Serious: Yes (Life-Threatening, Hospitalization)
  Sender: FDA-Public Use
  Company Number: HR-BAYER-2015-431817

PATIENT
  Age: 25 Year
  Sex: Female

DRUGS (2)
  1. ACETYLSALICYLIC ACID (} 100 MG) [Suspect]
     Active Substance: ASPIRIN
     Indication: BLOOD PRESSURE INCREASED
  2. AMLOPIN [Concomitant]
     Active Substance: AMLODIPINE BESYLATE
     Indication: BLOOD PRESSURE INCREASED

REACTIONS (4)
  - Ascites [Recovered/Resolved]
  - Maternal exposure during pregnancy [None]
  - Shock haemorrhagic [Recovered/Resolved]
  - Product use issue [None]
